FAERS Safety Report 22046491 (Version 2)
Quarter: 2023Q1

REPORT INFORMATION
  Report Type: Spontaneous
  Country: JP (occurrence: JP)
  Receive Date: 20230228
  Receipt Date: 20230324
  Transmission Date: 20230418
  Serious: Yes (Life-Threatening)
  Sender: FDA-Public Use
  Company Number: JP-BEH-2023155597

PATIENT
  Age: 83 Year
  Sex: Male
  Weight: 49 kg

DRUGS (8)
  1. ALBUMINAR-25 [Suspect]
     Active Substance: ALBUMIN HUMAN
     Indication: Hypoalbuminaemia
     Dosage: 1 VIAL, TWICE
     Route: 042
     Dates: start: 20221209, end: 20221209
  2. CALCIUM GLUCONATE\DEXTROSE\MAGNESIUM SULFATE\POTASSIUM ACETATE\POTASSI [Concomitant]
     Active Substance: CALCIUM GLUCONATE\DEXTROSE\MAGNESIUM SULFATE\POTASSIUM ACETATE\POTASSIUM PHOSPHATE, DIBASIC\ZINC SUL
     Dosage: UNK
     Route: 042
     Dates: start: 20221201, end: 20221225
  3. AMINO ACIDS, SOURCE UNSPECIFIED [Concomitant]
     Active Substance: AMINO ACIDS, SOURCE UNSPECIFIED
     Dosage: UNK
     Route: 042
     Dates: start: 20221201, end: 20221225
  4. MULTAMIN [AMINO ACIDS NOS;VITAMINS NOS] [Concomitant]
     Dosage: UNK
     Route: 042
     Dates: start: 20221201, end: 20221225
  5. CUPRIC SULFATE\FERRIC CHLORIDE\MANGANESE CHLORIDE\POTASSIUM IODIDE\ZIN [Concomitant]
     Active Substance: CUPRIC SULFATE\FERRIC CHLORIDE\MANGANESE CHLORIDE\POTASSIUM IODIDE\ZINC SULFATE
     Dosage: UNK
     Route: 042
     Dates: start: 20221201, end: 20221225
  6. MEROPENEM [Concomitant]
     Active Substance: MEROPENEM
     Dosage: UNK
     Route: 042
     Dates: start: 20221202, end: 20221212
  7. ISOTONIC SODIUM CHLORIDE SOLUTION [Concomitant]
     Active Substance: SODIUM CHLORIDE
     Dosage: UNK MILLILITER
     Route: 042
     Dates: start: 20221202, end: 20221212
  8. ISOTONIC SODIUM CHLORIDE SOLUTION [Concomitant]
     Active Substance: SODIUM CHLORIDE
     Dosage: 20 MILLILITER
     Route: 042
     Dates: start: 20221209

REACTIONS (8)
  - Hypersensitivity [Unknown]
  - Blood pressure decreased [Unknown]
  - Respiratory rate decreased [Unknown]
  - Oxygen saturation immeasurable [Unknown]
  - Respiration abnormal [Unknown]
  - Depressed level of consciousness [Recovered/Resolved]
  - Syncope [Recovered/Resolved]
  - Respiratory arrest [Recovered/Resolved]

NARRATIVE: CASE EVENT DATE: 20221209
